FAERS Safety Report 7155885-5 (Version None)
Quarter: 2010Q4

REPORT INFORMATION
  Report Type: 
  Country: None (occurrence: None)
  Receive Date: 20101214
  Receipt Date: 20101210
  Transmission Date: 20110411
  Serious: Yes (Death, Life-Threatening)
  Sender: FDA-Public Use
  Company Number: ES-BRISTOL-MYERS SQUIBB COMPANY-15419450

PATIENT
  Age: 64 Year
  Sex: Female

DRUGS (3)
  1. ORENCIA [Suspect]
     Indication: RHEUMATOID ARTHRITIS
     Route: 042
     Dates: start: 20090420, end: 20091217
  2. PROTELOS [Concomitant]
     Dates: start: 20070321, end: 20091217
  3. TRAMADOL [Concomitant]
     Dosage: 1DF=300 UNITS NOT GIVEN
     Dates: start: 20091109, end: 20091217

REACTIONS (2)
  - PNEUMONIA [None]
  - PULMONARY EMBOLISM [None]
